FAERS Safety Report 8791292 (Version 3)
Quarter: 2013Q1

REPORT INFORMATION
  Report Type: Spontaneous
  Country: GB (occurrence: None)
  Receive Date: 20120911
  Receipt Date: 20121212
  Transmission Date: 20140127
  Serious: Yes (Disabling)
  Sender: FDA-Public Use
  Company Number: GER/UKI/12/0025703

PATIENT
  Age: 71 Year
  Sex: Male

DRUGS (8)
  1. ATORVASTATIN (ATORVASTATIN) [Suspect]
     Indication: HYPERCHOLESTEROLAEMIA
     Route: 048
     Dates: start: 20120803, end: 20120807
  2. CLOPIDOGREL [Suspect]
     Indication: ANTIPLATELET THERAPY
     Route: 048
     Dates: start: 20120730
  3. EZETROL [Suspect]
     Indication: HYPERCHOLESTEROLAEMIA
     Route: 048
     Dates: start: 20120808, end: 20120810
  4. SIMVASTATIN (SIMVASTATIN) [Suspect]
     Indication: HYPERCHOLESTEROLAEMIA
     Route: 048
     Dates: start: 20120730, end: 20120802
  5. ASPIRIN [Concomitant]
  6. FEXOFENADINE [Concomitant]
  7. FLUCLOXACILLIN [Concomitant]
  8. LACTULOSE SOLUTION (LACTULOSE) [Concomitant]

REACTIONS (3)
  - Dyspnoea [None]
  - Cough [None]
  - Viral infection [None]
